FAERS Safety Report 7320900-2 (Version None)
Quarter: 2011Q1

REPORT INFORMATION
  Report Type: 
  Country: None (occurrence: None)
  Receive Date: 20110228
  Receipt Date: 20110222
  Transmission Date: 20110831
  Serious: Yes (Other)
  Sender: FDA-Public Use
  Company Number: US-MERCK-1102USA02875

PATIENT
  Age: 54 Year
  Sex: Female

DRUGS (5)
  1. CYTOXAN [Suspect]
     Route: 065
     Dates: start: 20110126
  2. IVEMEND [Suspect]
     Route: 042
     Dates: start: 20110126
  3. IVEMEND [Suspect]
     Route: 042
     Dates: start: 20110111
  4. IVEMEND [Suspect]
     Route: 042
     Dates: start: 20110101
  5. DOXORUBICIN HYDROCHLORIDE [Suspect]
     Route: 065
     Dates: start: 20110126

REACTIONS (3)
  - VEIN DISORDER [None]
  - INFUSION SITE PAIN [None]
  - ERYTHEMA [None]
